FAERS Safety Report 9878761 (Version 2)
Quarter: 2014Q1

REPORT INFORMATION
  Report Type: Spontaneous
  Country: US (occurrence: US)
  Receive Date: 20140206
  Receipt Date: 20140206
  Transmission Date: 20141002
  Serious: No
  Sender: FDA-Public Use
  Company Number: US-ALLERGAN-1310025US

PATIENT
  Sex: Female

DRUGS (10)
  1. BOTOX [Suspect]
     Indication: MIGRAINE
     Dosage: 15 UNITS, SINGLE
     Route: 030
     Dates: start: 20130612, end: 20130612
  2. BOTOX [Suspect]
     Dosage: 15 UNITS, SINGLE
     Route: 030
     Dates: start: 20130612, end: 20130612
  3. BOTOX [Suspect]
     Dosage: 30 UNITS, SINGLE
     Route: 030
     Dates: start: 20130612, end: 20130612
  4. BOTOX [Suspect]
     Dosage: 20 UNITS, SINGLE
     Route: 030
     Dates: start: 20130612, end: 20130612
  5. BOTOX [Suspect]
     Dosage: 10 UNITS, SINGLE
     Route: 030
     Dates: start: 20130612, end: 20130612
  6. BOTOX [Suspect]
     Dosage: 20 UNITS, SINGLE
     Route: 030
     Dates: start: 20130612, end: 20130612
  7. BOTOX [Suspect]
     Dosage: 10 UNITS, SINGLE
     Route: 030
     Dates: start: 20130612, end: 20130612
  8. BOTOX [Suspect]
     Dosage: 35 UNITS, SINGLE
     Route: 030
     Dates: start: 20130612, end: 20130612
  9. BOTOX [Suspect]
     Dosage: 40 UNITS, SINGLE
     Route: 030
     Dates: start: 20130612, end: 20130612
  10. ADVIL                              /00044201/ [Concomitant]
     Indication: PRODUCT USED FOR UNKNOWN INDICATION

REACTIONS (4)
  - Photophobia [Recovering/Resolving]
  - Wrong technique in drug usage process [Unknown]
  - Headache [Recovering/Resolving]
  - Therapeutic response decreased [Unknown]
